FAERS Safety Report 19687369 (Version 2)
Quarter: 2021Q3

REPORT INFORMATION
  Report Type: Report from Study
  Country: KR (occurrence: KR)
  Receive Date: 20210811
  Receipt Date: 20210826
  Transmission Date: 20211014
  Serious: Yes (Hospitalization, Other)
  Sender: FDA-Public Use
  Company Number: KR-TAKEDA-2021TUS049310

PATIENT
  Age: 44 Year
  Sex: Female
  Weight: 43 kg

DRUGS (104)
  1. VEDOLIZUMAB [Suspect]
     Active Substance: VEDOLIZUMAB
     Dosage: 300 MILLIGRAM
     Route: 042
     Dates: start: 20201208, end: 20201208
  2. NORMIX [Concomitant]
     Active Substance: RIFAXIMIN
     Indication: INFECTION
     Dosage: 3 MILLIGRAM, TID
     Route: 048
     Dates: start: 20201124, end: 20201126
  3. OMNICEF [Concomitant]
     Active Substance: CEFDINIR
     Dosage: 100 MILLIGRAM, TID
     Route: 048
     Dates: start: 20210427, end: 20210527
  4. REMICADE [Concomitant]
     Active Substance: INFLIXIMAB
     Dosage: 300 MILLIGRAM, Q2WEEKS
     Route: 042
     Dates: start: 20120202, end: 20120216
  5. AZAFRINE [Concomitant]
     Active Substance: AZATHIOPRINE
     Dosage: 50 MILLIGRAM, QD
     Route: 048
     Dates: start: 20110503, end: 20110721
  6. PENTASA [Concomitant]
     Active Substance: MESALAMINE
     Dosage: 3000 MILLIGRAM, QD
     Route: 048
     Dates: start: 20070821, end: 20101130
  7. SOLONDO [Concomitant]
     Active Substance: PREDNISOLONE
     Dosage: 10 MILLIGRAM, QD
     Route: 048
     Dates: start: 20070821, end: 20070827
  8. SOLONDO [Concomitant]
     Active Substance: PREDNISOLONE
     Dosage: 7.5 MILLIGRAM, QD
     Route: 048
     Dates: start: 20070828, end: 20070903
  9. SOLONDO [Concomitant]
     Active Substance: PREDNISOLONE
     Dosage: 40 MILLIGRAM, QD
     Route: 042
     Dates: start: 20121203, end: 20121209
  10. SOLONDO [Concomitant]
     Active Substance: PREDNISOLONE
     Dosage: 10 MILLIGRAM, BID
     Route: 048
     Dates: start: 20201208, end: 20201221
  11. TIRAMIDE [Concomitant]
     Dosage: UNK
     Route: 048
     Dates: start: 20210601
  12. CHLORPHENIRAMINE. [Concomitant]
     Active Substance: CHLORPHENIRAMINE
     Indication: ADVERSE EVENT
     Dosage: UNK
     Route: 042
     Dates: start: 20210613, end: 20210614
  13. VEDOLIZUMAB [Suspect]
     Active Substance: VEDOLIZUMAB
     Indication: CROHN^S DISEASE
     Dosage: 300 MILLIGRAM
     Route: 042
     Dates: start: 20201124, end: 20201124
  14. VEDOLIZUMAB [Suspect]
     Active Substance: VEDOLIZUMAB
     Dosage: 300 MILLIGRAM
     Route: 042
     Dates: start: 20210427, end: 20210427
  15. DICAMAX [Concomitant]
     Indication: VITAMIN D DEFICIENCY
     Dosage: 40 MILLIGRAM, QD
     Route: 048
     Dates: start: 20181123, end: 20201207
  16. REMICADE [Concomitant]
     Active Substance: INFLIXIMAB
     Dosage: 300 MILLIGRAM, Q8WEEKS
     Route: 042
     Dates: start: 20131223, end: 20140421
  17. AZAFRINE [Concomitant]
     Active Substance: AZATHIOPRINE
     Dosage: 25 MILLIGRAM, QD
     Route: 048
     Dates: start: 20110322, end: 20110404
  18. AZAFRINE [Concomitant]
     Active Substance: AZATHIOPRINE
     Dosage: 25 MILLIGRAM, QD
     Route: 048
     Dates: start: 20110722, end: 20110825
  19. AZAFRINE [Concomitant]
     Active Substance: AZATHIOPRINE
     Dosage: 50 MILLIGRAM, QD
     Route: 048
     Dates: start: 20111014, end: 20111222
  20. SOLONDO [Concomitant]
     Active Substance: PREDNISOLONE
     Dosage: 12.5 MILLIGRAM, QD
     Route: 048
     Dates: start: 20070809, end: 20070815
  21. SOLONDO [Concomitant]
     Active Substance: PREDNISOLONE
     Dosage: 27.5 MILLIGRAM, QD
     Route: 048
     Dates: start: 20091118, end: 20091124
  22. SOLONDO [Concomitant]
     Active Substance: PREDNISOLONE
     Dosage: 20 MILLIGRAM, QD
     Route: 048
     Dates: start: 20091209, end: 20091215
  23. SOLONDO [Concomitant]
     Active Substance: PREDNISOLONE
     Dosage: 12.5 MILLIGRAM, QD
     Route: 048
     Dates: start: 20091230, end: 20100105
  24. SOLONDO [Concomitant]
     Active Substance: PREDNISOLONE
     Dosage: 30 MILLIGRAM
     Route: 048
     Dates: start: 20100819, end: 20100825
  25. SOLONDO [Concomitant]
     Active Substance: PREDNISOLONE
     Dosage: 30 MILLIGRAM, QD
     Route: 048
     Dates: start: 20101210, end: 20101216
  26. SOLONDO [Concomitant]
     Active Substance: PREDNISOLONE
     Dosage: 10 MILLIGRAM, QD
     Route: 048
     Dates: start: 20110207, end: 20110221
  27. SOLU?MEDROL [Concomitant]
     Active Substance: METHYLPREDNISOLONE SODIUM SUCCINATE
     Dosage: 35 MILLIGRAM, QD
     Route: 042
     Dates: start: 20101210, end: 20101216
  28. CEFOTAXIME SODIUM [Concomitant]
     Active Substance: CEFOTAXIME SODIUM
     Dosage: UNK
     Route: 042
     Dates: start: 20210614, end: 20210614
  29. QUESTRAN LOC [Concomitant]
     Indication: DIARRHOEA
     Dosage: UNK
     Route: 048
     Dates: start: 20210614, end: 20210621
  30. BARACLUDE [Concomitant]
     Active Substance: ENTECAVIR
     Dosage: 0.5 MILLIGRAM, QD
     Route: 048
     Dates: start: 20110503
  31. HUMIRA [Concomitant]
     Active Substance: ADALIMUMAB
     Dosage: 40 MILLIGRAM, Q2WEEKS
     Route: 058
     Dates: start: 20160308, end: 20160308
  32. HUMIRA [Concomitant]
     Active Substance: ADALIMUMAB
     Dosage: 40 MILLIGRAM, Q2WEEKS
     Route: 058
     Dates: start: 20160308, end: 20160405
  33. HUMIRA [Concomitant]
     Active Substance: ADALIMUMAB
     Dosage: 40 MILLIGRAM, Q2WEEKS
     Route: 058
     Dates: start: 20160322, end: 20160906
  34. AZAFRINE [Concomitant]
     Active Substance: AZATHIOPRINE
     Dosage: 50 MILLIGRAM, QD
     Route: 048
     Dates: start: 20120312, end: 20210104
  35. SOLONDO [Concomitant]
     Active Substance: PREDNISOLONE
     Dosage: 15 MILLIGRAM, QD
     Route: 048
     Dates: start: 20070802, end: 20070808
  36. SOLONDO [Concomitant]
     Active Substance: PREDNISOLONE
     Dosage: 10 MILLIGRAM, QD
     Route: 048
     Dates: start: 20101014, end: 20101020
  37. SOLONDO [Concomitant]
     Active Substance: PREDNISOLONE
     Dosage: 30 MILLIGRAM, QD
     Route: 048
     Dates: start: 20101217, end: 20101230
  38. SOLONDO [Concomitant]
     Active Substance: PREDNISOLONE
     Dosage: 5 MILLIGRAM, QD
     Route: 048
     Dates: start: 20110222, end: 20110307
  39. TRIZELE [Concomitant]
     Active Substance: METRONIDAZOLE
     Indication: INFECTION
     Dosage: UNK
     Route: 042
     Dates: start: 20210612, end: 20210613
  40. TRIZELE [Concomitant]
     Active Substance: METRONIDAZOLE
     Dosage: UNK
     Route: 042
     Dates: start: 20210614, end: 20210614
  41. STELARA [Concomitant]
     Active Substance: USTEKINUMAB
     Indication: CROHN^S DISEASE
     Dosage: UNK
     Route: 042
     Dates: start: 20210613, end: 20210613
  42. HUMIRA [Concomitant]
     Active Substance: ADALIMUMAB
     Dosage: 40 MILLIGRAM, 1/WEEK
     Route: 058
     Dates: start: 20160913, end: 20171205
  43. REMICADE [Concomitant]
     Active Substance: INFLIXIMAB
     Dosage: 400 MILLIGRAM, Q8WEEKS
     Route: 042
     Dates: start: 20130722, end: 20131118
  44. AZAFRINE [Concomitant]
     Active Substance: AZATHIOPRINE
     Indication: CROHN^S DISEASE
     Dosage: 25 MILLIGRAM, QD
     Route: 048
     Dates: start: 20101231, end: 20110221
  45. AZAFRINE [Concomitant]
     Active Substance: AZATHIOPRINE
     Dosage: 50 MILLIGRAM, QD
     Route: 048
     Dates: start: 20110405, end: 20110502
  46. AZAFRINE [Concomitant]
     Active Substance: AZATHIOPRINE
     Dosage: 75 MILLIGRAM, QD
     Route: 048
     Dates: start: 20111223, end: 20120311
  47. PENTASA [Concomitant]
     Active Substance: MESALAMINE
     Dosage: 1000 MILLIGRAM, TID
     Route: 048
     Dates: start: 20070719, end: 20070815
  48. SOLONDO [Concomitant]
     Active Substance: PREDNISOLONE
     Dosage: 17.5 MILLIGRAM, QD
     Route: 048
     Dates: start: 20070726, end: 20070801
  49. SOLONDO [Concomitant]
     Active Substance: PREDNISOLONE
     Dosage: 30 MILLIGRAM, QD
     Route: 048
     Dates: start: 20091111, end: 20091117
  50. SOLONDO [Concomitant]
     Active Substance: PREDNISOLONE
     Dosage: 25 MILLIGRAM, QD
     Route: 048
     Dates: start: 20091125, end: 20091201
  51. SOLONDO [Concomitant]
     Active Substance: PREDNISOLONE
     Dosage: 17.5 MILLIGRAM, QD
     Route: 048
     Dates: start: 20091216, end: 20091222
  52. SOLONDO [Concomitant]
     Active Substance: PREDNISOLONE
     Dosage: 10 MILLIGRAM, QD
     Route: 048
     Dates: start: 20100106, end: 20100112
  53. SOLONDO [Concomitant]
     Active Substance: PREDNISOLONE
     Dosage: 27.5 MILLIGRAM, QD
     Route: 048
     Dates: start: 20100826, end: 20100901
  54. SOLONDO [Concomitant]
     Active Substance: PREDNISOLONE
     Dosage: 22.5 MILLIGRAM, QD
     Route: 048
     Dates: start: 20100909, end: 20100915
  55. SOLONDO [Concomitant]
     Active Substance: PREDNISOLONE
     Dosage: 17.5 MILLIGRAM, QD
     Route: 048
     Dates: start: 20100923, end: 20100929
  56. SOLONDO [Concomitant]
     Active Substance: PREDNISOLONE
     Dosage: 15 MILLIGRAM, QD
     Route: 048
     Dates: start: 20100930, end: 20101006
  57. SOLONDO [Concomitant]
     Active Substance: PREDNISOLONE
     Dosage: 30 MILLIGRAM, QD
     Route: 042
     Dates: start: 20101217, end: 20101217
  58. SOLONDO [Concomitant]
     Active Substance: PREDNISOLONE
     Dosage: 20 MILLIGRAM, QD
     Route: 048
     Dates: start: 20110107, end: 20110120
  59. SOLONDO [Concomitant]
     Active Substance: PREDNISOLONE
     Dosage: 20 MILLIGRAM, BID
     Route: 048
     Dates: start: 20201124, end: 20201130
  60. SOLONDO [Concomitant]
     Active Substance: PREDNISOLONE
     Dosage: 5 MILLIGRAM, QD
     Route: 048
     Dates: start: 20210105, end: 20210118
  61. POLYBUTINE [Concomitant]
     Indication: DIARRHOEA
     Dosage: 100 MILLIGRAM
     Route: 048
     Dates: start: 20210309, end: 20210408
  62. VEDOLIZUMAB [Suspect]
     Active Substance: VEDOLIZUMAB
     Dosage: 300 MILLIGRAM
     Route: 042
     Dates: start: 20210309, end: 20210309
  63. HUMIRA [Concomitant]
     Active Substance: ADALIMUMAB
     Dosage: UNK, 2/WEEK
     Route: 058
     Dates: start: 20171212, end: 20200407
  64. REMICADE [Concomitant]
     Active Substance: INFLIXIMAB
     Dosage: 500 MILLIGRAM, QD
     Route: 042
     Dates: start: 20130527, end: 20130527
  65. REMICADE [Concomitant]
     Active Substance: INFLIXIMAB
     Dosage: 500 MILLIGRAM, Q8WEEKS
     Route: 042
     Dates: start: 20140616, end: 20160105
  66. AZAFRINE [Concomitant]
     Active Substance: AZATHIOPRINE
     Dosage: 25 MILLIGRAM, QD
     Route: 048
     Dates: start: 20110827, end: 20111013
  67. SOLONDO [Concomitant]
     Active Substance: PREDNISOLONE
     Dosage: 22.5 MILLIGRAM, QD
     Route: 048
     Dates: start: 20091202, end: 20091208
  68. QUESTRAN LOC [Concomitant]
     Dosage: UNK
     Route: 048
     Dates: start: 20210622
  69. MEDILAC DS [Concomitant]
     Dosage: UNK UNK, TID
     Route: 048
     Dates: start: 20210309, end: 20210408
  70. FLASINYL [Concomitant]
     Dosage: 250 MILLIGRAM, TID
     Route: 048
     Dates: start: 20210427, end: 20210527
  71. HUMIRA [Concomitant]
     Active Substance: ADALIMUMAB
     Dosage: 80 MILLIGRAM, Q2WEEKS
     Route: 058
     Dates: start: 20160223, end: 20160223
  72. HUMIRA [Concomitant]
     Active Substance: ADALIMUMAB
     Dosage: UNK UNK, 1/WEEK
     Route: 058
     Dates: start: 20200421, end: 20201117
  73. SOLONDO [Concomitant]
     Active Substance: PREDNISOLONE
     Indication: CROHN^S DISEASE
     Dosage: 20 MILLIGRAM, QD
     Route: 048
     Dates: start: 20070719, end: 20070725
  74. SOLONDO [Concomitant]
     Active Substance: PREDNISOLONE
     Dosage: 5 MILLIGRAM, QD
     Route: 048
     Dates: start: 20070904, end: 20070917
  75. SOLONDO [Concomitant]
     Active Substance: PREDNISOLONE
     Dosage: 10 MILLIGRAM, QD
     Route: 048
     Dates: start: 20080619, end: 20080813
  76. SOLONDO [Concomitant]
     Active Substance: PREDNISOLONE
     Dosage: UNK UNK, QD
     Route: 048
     Dates: start: 20091223, end: 20091229
  77. SOLONDO [Concomitant]
     Active Substance: PREDNISOLONE
     Dosage: 5 MILLIGRAM, QD
     Route: 048
     Dates: start: 20100120, end: 20100203
  78. SOLONDO [Concomitant]
     Active Substance: PREDNISOLONE
     Dosage: 25 MILLIGRAM, QD
     Route: 048
     Dates: start: 20100902, end: 20100908
  79. SOLONDO [Concomitant]
     Active Substance: PREDNISOLONE
     Dosage: 20 MILLIGRAM, QD
     Route: 048
     Dates: start: 20100916, end: 20100922
  80. SOLONDO [Concomitant]
     Active Substance: PREDNISOLONE
     Dosage: 12.5 MILLIGRAM, QD
     Route: 048
     Dates: start: 20101007, end: 20101013
  81. SOLONDO [Concomitant]
     Active Substance: PREDNISOLONE
     Dosage: 5 MILLIGRAM, QD
     Route: 048
     Dates: start: 20101028, end: 20101103
  82. SOLONDO [Concomitant]
     Active Substance: PREDNISOLONE
     Dosage: 15 MILLIGRAM, QD
     Route: 048
     Dates: start: 20110121, end: 20110206
  83. SOLONDO [Concomitant]
     Active Substance: PREDNISOLONE
     Dosage: 5 MILLIGRAM, BID
     Route: 048
     Dates: start: 20201222, end: 20210104
  84. POLYBUTINE [Concomitant]
     Dosage: 100 MILLIGRAM
     Route: 048
     Dates: start: 20210601
  85. TIRAMIDE [Concomitant]
     Indication: INFECTION
     Dosage: 100 MILLIGRAM, TID
     Route: 048
     Dates: start: 20210309, end: 20210408
  86. CORTISOLU [Concomitant]
     Active Substance: HYDROCORTISONE SODIUM SUCCINATE
     Indication: ADVERSE EVENT
     Dosage: UNK
     Route: 042
     Dates: start: 20210613, end: 20210613
  87. VEDOLIZUMAB [Suspect]
     Active Substance: VEDOLIZUMAB
     Dosage: 300 MILLIGRAM
     Route: 042
     Dates: start: 20210105, end: 20210105
  88. VICAMAX PLUS [Concomitant]
     Indication: VITAMIN D DEFICIENCY
     Dosage: UNK UNK, QD
     Route: 048
     Dates: start: 20201208, end: 20210305
  89. OMNICEF [Concomitant]
     Active Substance: CEFDINIR
     Indication: GASTROENTERITIS AEROBACTER
     Dosage: 100 MILLIGRAM, TID
     Route: 048
     Dates: start: 20210419, end: 20210425
  90. REMICADE [Concomitant]
     Active Substance: INFLIXIMAB
     Dosage: 300 MILLIGRAM
     Route: 042
     Dates: start: 20120312, end: 20160105
  91. AZAFRINE [Concomitant]
     Active Substance: AZATHIOPRINE
     Dosage: 50 MILLIGRAM, QD
     Route: 048
     Dates: start: 20110222, end: 20110321
  92. AZAFRINE [Concomitant]
     Active Substance: AZATHIOPRINE
     Dosage: 50 MILLIGRAM, QD
     Dates: start: 20110826, end: 20111012
  93. PENTASA [Concomitant]
     Active Substance: MESALAMINE
     Dosage: UNK, QD
     Route: 048
     Dates: start: 20210105, end: 2021
  94. SOLONDO [Concomitant]
     Active Substance: PREDNISOLONE
     Dosage: 7.5 MILLIGRAM, QD
     Route: 048
     Dates: start: 20100113, end: 20100119
  95. SOLONDO [Concomitant]
     Active Substance: PREDNISOLONE
     Dosage: 25 MILLIGRAM, QD
     Route: 048
     Dates: start: 20101231, end: 20110106
  96. SOLU?MEDROL [Concomitant]
     Active Substance: METHYLPREDNISOLONE SODIUM SUCCINATE
     Dosage: 40 MILLIGRAM, QD
     Route: 042
     Dates: start: 20101203, end: 20101209
  97. PANTOLOC [Concomitant]
     Active Substance: PANTOPRAZOLE SODIUM
     Indication: GASTRIC ULCER
     Dosage: 40 MILLIGRAM, QD
     Route: 048
     Dates: start: 20201124, end: 20210401
  98. FLASINYL [Concomitant]
     Indication: INFECTION
     Dosage: 250 MILLIGRAM, TID
     Route: 048
     Dates: start: 20210419, end: 20210425
  99. AZAFRINE [Concomitant]
     Active Substance: AZATHIOPRINE
     Dosage: 25 MILLIGRAM, QD
     Route: 048
     Dates: start: 20110406, end: 20110501
  100. PENTASA [Concomitant]
     Active Substance: MESALAMINE
     Dosage: 4000 MILLIGRAM, QD
     Route: 048
     Dates: start: 20110722, end: 20111031
  101. SOLONDO [Concomitant]
     Active Substance: PREDNISOLONE
     Dosage: 7.5 MILLIGRAM, QD
     Route: 048
     Dates: start: 20101021, end: 20101027
  102. SOLONDO [Concomitant]
     Active Substance: PREDNISOLONE
     Dosage: 15 MILLIGRAM, BID
     Route: 048
     Dates: start: 20201201, end: 20201207
  103. CEFOTAXIME SODIUM [Concomitant]
     Active Substance: CEFOTAXIME SODIUM
     Indication: INFECTION
     Dosage: UNK
     Route: 042
     Dates: start: 20210613, end: 20210613
  104. PACETA [Concomitant]
     Indication: ABDOMINAL PAIN
     Dosage: UNK
     Route: 042
     Dates: start: 20210613, end: 20210614

REACTIONS (1)
  - Crohn^s disease [Recovering/Resolving]

NARRATIVE: CASE EVENT DATE: 20210612
